FAERS Safety Report 7967087-0 (Version None)
Quarter: 2011Q4

REPORT INFORMATION
  Report Type: 
  Country: None (occurrence: None)
  Receive Date: 20111209
  Receipt Date: 20110803
  Transmission Date: 20120403
  Serious: Yes (Hospitalization, Other)
  Sender: FDA-Public Use
  Company Number: US-ELI_LILLY_AND_COMPANY-US201108000413

PATIENT
  Sex: Female

DRUGS (8)
  1. PREDNISONE TAB [Concomitant]
     Dosage: UNK
  2. FORTEO [Concomitant]
     Dosage: 20 UG, QD
     Dates: start: 20101101
  3. METFORMIN HCL [Concomitant]
     Dosage: UNK
  4. RAMIPRIL [Concomitant]
     Dosage: UNK
  5. BYETTA [Suspect]
     Dosage: UNK
  6. GLIPIZIDE [Concomitant]
     Dosage: UNK
  7. ENALAPRIL MALEATE [Concomitant]
     Dosage: UNK
  8. METOPROLOL TARTRATE [Concomitant]
     Dosage: UNK

REACTIONS (7)
  - NERVOUS SYSTEM DISORDER [None]
  - AMNESIA [None]
  - BLOOD GLUCOSE INCREASED [None]
  - CHRONIC OBSTRUCTIVE PULMONARY DISEASE [None]
  - HYPOAESTHESIA [None]
  - INJECTION SITE PAIN [None]
  - DIABETES MELLITUS [None]
